FAERS Safety Report 16819525 (Version 1)
Quarter: 2019Q3

REPORT INFORMATION
  Report Type: Spontaneous
  Country: SE (occurrence: SE)
  Receive Date: 20190917
  Receipt Date: 20190917
  Transmission Date: 20191005
  Serious: Yes (Other)
  Sender: FDA-Public Use
  Company Number: SE-VALIDUS PHARMACEUTICALS LLC-SE-2019VAL000529

PATIENT

DRUGS (2)
  1. CALCITRIOL. [Suspect]
     Active Substance: CALCITRIOL
     Indication: OSTEOPOROSIS
     Dosage: 0.5 ?G, UNK
     Route: 048
  2. CALCITONIN [Suspect]
     Active Substance: CALCITONIN
     Indication: OSTEOPOROSIS
     Dosage: 0.5 MG, 3 IN 1 WK
     Route: 058

REACTIONS (1)
  - Femur fracture [Unknown]
